FAERS Safety Report 7621477-4 (Version None)
Quarter: 2011Q3

REPORT INFORMATION
  Report Type: 
  Country: None (occurrence: None)
  Receive Date: 20110719
  Receipt Date: 20110509
  Transmission Date: 20111222
  Serious: Yes (Life-Threatening)
  Sender: FDA-Public Use
  Company Number: IT-AMGEN-ITACT2011023939

PATIENT
  Age: 63 Year
  Sex: Male

DRUGS (10)
  1. OXALIPLATIN [Concomitant]
     Dosage: 170 MG, UNK
     Dates: start: 20110418
  2. PANITUMUMAB [Suspect]
     Indication: COLORECTAL CANCER
     Dosage: 490 MG, UNK
     Dates: start: 20110418
  3. LANSOPRAZOLE [Concomitant]
     Indication: GASTRITIS
     Dosage: 30 MG, UNK
     Route: 048
     Dates: start: 20110404, end: 20110506
  4. DEXAMETHASONE [Concomitant]
     Indication: NAUSEA
     Dosage: 4 MG, QD
     Route: 048
     Dates: start: 20110505, end: 20110506
  5. METFORMIN HCL [Concomitant]
     Indication: DIABETES MELLITUS
     Dosage: 1000 MG, QD
     Route: 048
     Dates: end: 20110506
  6. FLUOROURACIL [Concomitant]
     Dosage: 4800 MG, UNK
  7. IRINOTECAN HCL [Concomitant]
     Dosage: 300 MG, UNK
     Dates: start: 20110418
  8. LEUCOVORIN CALCIUM [Concomitant]
     Dosage: 400 MG, UNK
     Dates: start: 20110418
  9. OXYCODONE HCL [Concomitant]
     Indication: PAIN
     Dosage: 20 MG, QD
     Route: 048
     Dates: start: 20110502, end: 20110506
  10. FLUCONAZOLE [Concomitant]
     Indication: MUCOSAL INFLAMMATION
     Dosage: 200 MG, QD
     Route: 042
     Dates: start: 20110505

REACTIONS (1)
  - NECROTISING FASCIITIS [None]
